FAERS Safety Report 12611157 (Version 1)
Quarter: 2016Q3

REPORT INFORMATION
  Report Type: Spontaneous
  Country: IL (occurrence: IL)
  Receive Date: 20160801
  Receipt Date: 20160801
  Transmission Date: 20161109
  Serious: Yes (Hospitalization, Other)
  Sender: FDA-Public Use
  Company Number: IL-CHARTWELL LIFE SCIENCE LLC-2016CHA00028

PATIENT
  Age: 25 Year
  Sex: Male

DRUGS (2)
  1. BEER (ETHANOL) [Suspect]
     Active Substance: ALCOHOL
     Dosage: 0.33 L, ONCE
     Route: 048
  2. DOXYCYCLINE HYCLATE. [Suspect]
     Active Substance: DOXYCYCLINE HYCLATE
     Indication: PNEUMONIA
     Dosage: 100 MG, 2X/DAY
     Route: 065

REACTIONS (4)
  - Oesophageal ulcer [Recovered/Resolved]
  - Gastritis [Recovered/Resolved]
  - Duodenitis [Recovered/Resolved]
  - Drug interaction [Recovered/Resolved]
